FAERS Safety Report 10022738 (Version 3)
Quarter: 2014Q3

REPORT INFORMATION
  Report Type: Spontaneous
  Country: GB (occurrence: GB)
  Receive Date: 20140319
  Receipt Date: 20140729
  Transmission Date: 20150326
  Serious: Yes (Other)
  Sender: FDA-Public Use
  Company Number: GB-CELGENEUS-167-20785-14030621

PATIENT
  Age: 56 Year
  Sex: Female

DRUGS (3)
  1. THALIDOMIDE [Suspect]
     Active Substance: THALIDOMIDE
     Indication: CUTANEOUS VASCULITIS
     Dosage: 100 MILLIGRAM
     Route: 048
     Dates: start: 20051118
  2. THALIDOMIDE [Suspect]
     Active Substance: THALIDOMIDE
     Indication: COLD URTICARIA
  3. THALIDOMIDE [Suspect]
     Active Substance: THALIDOMIDE
     Indication: CRYOGLOBULINAEMIA

REACTIONS (2)
  - Plasma cell myeloma [Recovered/Resolved]
  - Chillblains [Recovered/Resolved]

NARRATIVE: CASE EVENT DATE: 200704
